FAERS Safety Report 6719808-2 (Version None)
Quarter: 2010Q2

REPORT INFORMATION
  Report Type: 
  Country: None (occurrence: None)
  Receive Date: 20100511
  Receipt Date: 20100428
  Transmission Date: 20101027
  Serious: Yes (Other)
  Sender: FDA-Public Use
  Company Number: PHHY2010CA27838

PATIENT

DRUGS (5)
  1. ALISKIREN ALI+ [Suspect]
     Dosage: 150 MG, UNK
  2. NORVASC [Concomitant]
     Dosage: UNK
  3. BETA BLOCKING AGENTS [Concomitant]
     Dosage: UNK
  4. CALCIUM CHANNEL BLOCKERS [Concomitant]
     Dosage: UNK
  5. ACE INHIBITOR NOS [Concomitant]
     Dosage: UNK

REACTIONS (5)
  - ANGINA PECTORIS [None]
  - BLOOD PRESSURE INCREASED [None]
  - HEART RATE DECREASED [None]
  - STENT PLACEMENT [None]
  - VASCULAR GRAFT [None]
